FAERS Safety Report 5746389-2 (Version None)
Quarter: 2008Q2

REPORT INFORMATION
  Report Type: 
  Country: None (occurrence: None)
  Receive Date: 20080520
  Receipt Date: 20080520
  Transmission Date: 20081010
  Serious: Yes (Death)
  Sender: FDA-Public Use
  Company Number: None

PATIENT
  Age: 2 Year
  Sex: Female
  Weight: 7.7 kg

DRUGS (6)
  1. BOTOX [Suspect]
     Indication: MUSCLE SPASTICITY
     Dosage: 100 UNITS ONCE IM
     Route: 030
     Dates: start: 20080424, end: 20080424
  2. BOTOX [Suspect]
     Indication: QUADRIPLEGIA
     Dosage: 100 UNITS ONCE IM
     Route: 030
     Dates: start: 20080424, end: 20080424
  3. PHENOBARBITAL TAB [Concomitant]
  4. BACLOFEN [Concomitant]
  5. REGLAN [Concomitant]
  6. ZANTAC [Concomitant]

REACTIONS (1)
  - DEATH [None]
